FAERS Safety Report 24664403 (Version 1)
Quarter: 2024Q4

REPORT INFORMATION
  Report Type: Spontaneous
  Country: US (occurrence: US)
  Receive Date: 20241126
  Receipt Date: 20241126
  Transmission Date: 20250115
  Serious: Yes (Other)
  Sender: MYLAN
  Company Number: US-MYLANLABS-2024M1103576

PATIENT
  Sex: Male

DRUGS (23)
  1. PREDNISONE [Suspect]
     Active Substance: PREDNISONE
     Indication: Autoimmune disorder
     Dosage: 60 MILLIGRAM, QD
     Route: 065
  2. METHYLPREDNISOLONE [Suspect]
     Active Substance: METHYLPREDNISOLONE
     Indication: Autoimmune disorder
     Dosage: 100 MILLIGRAM, PRN AS NEEDED
     Route: 042
     Dates: end: 20181209
  3. ALENDRONATE [Suspect]
     Active Substance: ALENDRONATE SODIUM
     Indication: Osteoporosis
     Dosage: 5 MILLIGRAM, QD
     Route: 065
  4. RITUXIMAB [Concomitant]
     Active Substance: RITUXIMAB
     Indication: Autoimmune disorder
     Dosage: UNK; INFUSIONS
     Route: 065
  5. METHOTREXATE [Concomitant]
     Active Substance: METHOTREXATE
     Indication: Autoimmune disorder
     Dosage: UNK
     Route: 065
  6. GOLIMUMAB [Concomitant]
     Active Substance: GOLIMUMAB
     Indication: Autoimmune disorder
     Dosage: UNK
     Route: 065
  7. ETANERCEPT [Concomitant]
     Active Substance: ETANERCEPT
     Indication: Autoimmune disorder
     Dosage: UNK
     Route: 065
  8. MEPOLIZUMAB [Concomitant]
     Active Substance: MEPOLIZUMAB
     Indication: Autoimmune disorder
     Dosage: UNK
     Route: 065
  9. TOFACITINIB [Concomitant]
     Active Substance: TOFACITINIB
     Indication: Autoimmune disorder
     Dosage: UNK
     Route: 065
  10. ABATACEPT [Concomitant]
     Active Substance: ABATACEPT
     Indication: Autoimmune disorder
     Dosage: UNK
     Route: 065
  11. MYCOPHENOLATE MOFETIL [Concomitant]
     Active Substance: MYCOPHENOLATE MOFETIL
     Indication: Autoimmune disorder
     Dosage: UNK
     Route: 065
  12. ECULIZUMAB [Concomitant]
     Active Substance: ECULIZUMAB
     Indication: Autoimmune disorder
     Dosage: UNK
     Route: 065
  13. Immunoglobulin [Concomitant]
     Indication: Autoimmune disorder
     Dosage: UNK
     Route: 042
  14. DENOSUMAB [Concomitant]
     Active Substance: DENOSUMAB
     Indication: Autoimmune disorder
     Dosage: 60 MILLIGRAM; EVERY 6MONTHS
     Route: 065
  15. BUDESONIDE [Concomitant]
     Active Substance: BUDESONIDE
     Indication: Autoimmune disorder
     Dosage: UNK
     Route: 048
  16. CERTOLIZUMAB [Concomitant]
     Active Substance: CERTOLIZUMAB
     Indication: Autoimmune disorder
     Dosage: UNK
     Route: 065
  17. CYCLOSPORINE [Concomitant]
     Active Substance: CYCLOSPORINE
     Indication: Autoimmune disorder
     Dosage: UNK
     Route: 065
  18. LAMOTRIGINE [Concomitant]
     Active Substance: LAMOTRIGINE
     Indication: Autoimmune disorder
     Dosage: UNK
     Route: 065
  19. LEVETIRACETAM [Concomitant]
     Active Substance: LEVETIRACETAM
     Indication: Autoimmune disorder
     Dosage: UNK
     Route: 065
  20. VINCRISTINE [Concomitant]
     Active Substance: VINCRISTINE
     Indication: Autoimmune disorder
     Dosage: UNK
     Route: 065
  21. ADALIMUMAB [Concomitant]
     Active Substance: ADALIMUMAB
     Indication: Autoimmune disorder
     Dosage: UNK
     Route: 065
  22. INFLIXIMAB [Concomitant]
     Active Substance: INFLIXIMAB
     Indication: Autoimmune disorder
     Dosage: UNK
     Route: 065
  23. MERCAPTOPURINE [Concomitant]
     Active Substance: MERCAPTOPURINE
     Indication: Autoimmune disorder
     Dosage: UNK
     Route: 065

REACTIONS (2)
  - Osteoporosis [Unknown]
  - Intentional product misuse [Unknown]
